FAERS Safety Report 8082792-6 (Version None)
Quarter: 2012Q1

REPORT INFORMATION
  Report Type: 
  Country: None (occurrence: None)
  Receive Date: 20120127
  Receipt Date: 20110214
  Transmission Date: 20120608
  Serious: No
  Sender: FDA-Public Use
  Company Number: US-ABBOTT-11P-163-0705106-00

PATIENT
  Sex: Female

DRUGS (12)
  1. HUMIRA [Suspect]
     Indication: RHEUMATOID ARTHRITIS
     Dates: start: 20060131
  2. FOLIC ACID [Concomitant]
     Indication: VITAMIN SUPPLEMENTATION
  3. FISH OIL [Concomitant]
     Indication: SUPPLEMENTATION THERAPY
  4. LISINOPRIL [Concomitant]
     Indication: HYPERTENSION
  5. CALTRATE D [Concomitant]
     Indication: MINERAL SUPPLEMENTATION
  6. NAPROXEN [Concomitant]
     Indication: PAIN
  7. CITALOPRAM [Concomitant]
     Indication: DEPRESSION
  8. WOMANS MULTIVITAMIN [Concomitant]
     Indication: VITAMIN SUPPLEMENTATION
  9. OMEPRAZOLE [Concomitant]
     Indication: PRODUCT USED FOR UNKNOWN INDICATION
  10. ALPRAZOLAM [Concomitant]
     Indication: DEPRESSION
  11. METHOTREXATE [Concomitant]
     Indication: RHEUMATOID ARTHRITIS
     Route: 048
  12. METOPROLOL TARTRATE [Concomitant]
     Indication: HYPERTENSION

REACTIONS (4)
  - INJECTION SITE HAEMATOMA [None]
  - COUGH [None]
  - INJECTION SITE PAIN [None]
  - INFLUENZA [None]
